FAERS Safety Report 5823590-0 (Version None)
Quarter: 2008Q3

REPORT INFORMATION
  Report Type: 
  Country: None (occurrence: None)
  Receive Date: 20080725
  Receipt Date: 20080724
  Transmission Date: 20090109
  Serious: Yes (Life-Threatening, Other)
  Sender: FDA-Public Use
  Company Number: JP-BOEHRINGER INGELHEIM GMBH, GERMANY-2008-BP-11586NB

PATIENT
  Age: 67 Year
  Sex: Female

DRUGS (4)
  1. BI-SIFROL TABLETS [Suspect]
     Indication: PARKINSON'S DISEASE
     Route: 048
     Dates: start: 20070522, end: 20080710
  2. CARBIDOPA AND LEVODOPA [Concomitant]
     Indication: PARKINSON'S DISEASE
     Route: 048
     Dates: start: 19921201
  3. COMTAN [Concomitant]
     Indication: PARKINSON'S DISEASE
     Route: 048
     Dates: start: 20080610
  4. FP [Concomitant]
     Indication: PARKINSON'S DISEASE
     Route: 048
     Dates: start: 20070510

REACTIONS (2)
  - ROAD TRAFFIC ACCIDENT [None]
  - SUDDEN ONSET OF SLEEP [None]
